FAERS Safety Report 4777918-3 (Version None)
Quarter: 2005Q3

REPORT INFORMATION
  Report Type: 
  Country: None (occurrence: None)
  Receive Date: 20050921
  Receipt Date: 20050831
  Transmission Date: 20060218
  Serious: Yes (Hospitalization)
  Sender: FDA-Public Use
  Company Number: EWC040840300

PATIENT
  Age: 39 Year
  Sex: Female
  Weight: 70 kg

DRUGS (3)
  1. OLANZAPINE [Suspect]
     Indication: MANIA
     Dosage: 15 MG/2 DAY
     Dates: start: 20040616, end: 20040726
  2. DEPAKINE (VALPROAE SODIUM) [Concomitant]
  3. OXAZEPAM [Concomitant]

REACTIONS (12)
  - BLOOD ALBUMIN DECREASED [None]
  - BLOOD LACTATE DEHYDROGENASE INCREASED [None]
  - CENTRAL NERVOUS SYSTEM INFECTION [None]
  - EXTRAPYRAMIDAL DISORDER [None]
  - HAEMOGLOBIN DECREASED [None]
  - HYPERTHERMIA [None]
  - LABILE BLOOD PRESSURE [None]
  - NEUROLEPTIC MALIGNANT SYNDROME [None]
  - PARKINSONISM [None]
  - PNEUMONIA [None]
  - SERUM FERRITIN INCREASED [None]
  - WHITE BLOOD CELL COUNT INCREASED [None]
